FAERS Safety Report 7281373-1 (Version None)
Quarter: 2011Q1

REPORT INFORMATION
  Report Type: 
  Country: None (occurrence: None)
  Receive Date: 20110208
  Receipt Date: 20110127
  Transmission Date: 20110831
  Serious: Yes (Hospitalization)
  Sender: FDA-Public Use
  Company Number: CA-JNJFOC-20110200136

PATIENT
  Sex: Female
  Weight: 43 kg

DRUGS (21)
  1. REMICADE [Suspect]
     Indication: RHEUMATOID ARTHRITIS
     Dosage: Q 6-8 WEEKS
     Route: 042
  2. VITAMIN D [Concomitant]
     Route: 065
  3. ACTONEL [Concomitant]
     Route: 065
  4. FOLIC ACID [Concomitant]
     Dosage: ONE 3X WEEKLY ON M-W-F
     Route: 048
  5. MAGNESIUM [Concomitant]
     Route: 065
  6. HYDROMORPHONE HCL [Concomitant]
     Dosage: 2 TAL. AT BEDTIME AND IN AM
     Route: 048
  7. TYLENOL-500 [Concomitant]
     Dosage: 2 AS NEEDED
     Route: 065
  8. LACTULOSE [Concomitant]
     Dosage: 1 TBL. DAILY
     Route: 065
  9. FENTANYL [Concomitant]
     Route: 062
  10. METOPROLOL TARTRATE [Concomitant]
     Dosage: (1/2 OF 50 MG. TAB)
     Route: 022
  11. CALCIUM [Concomitant]
     Route: 065
  12. VITAMIN-MINERAL COMPOUND TAB [Concomitant]
     Route: 065
  13. AMITRIPTYLINE HCL [Concomitant]
     Dosage: ONE 3 HRS. BEFORE BEDTIME
     Route: 065
  14. SOFLAX [Concomitant]
     Route: 065
  15. LORAZEPAM [Concomitant]
     Dosage: 1 AS NEEDED
     Route: 065
  16. BENZYDAMINE [Concomitant]
     Dosage: (0.15 %) 1 T EVERY 3-4 HOURS AS NEEDED
     Route: 048
  17. BUDESONIDE [Concomitant]
     Dosage: 1-2 SPRAYS DAILY
     Route: 065
  18. OMEPRAZOLE [Concomitant]
     Route: 065
  19. METHOTREXATE [Concomitant]
     Dosage: 2 DOSES 3X WEEKLY ON M-W-F
     Route: 065
  20. FLOVENT [Concomitant]
     Dosage: 1-2 PUFFS DAILY
     Route: 055
  21. MELOXICAM [Concomitant]
     Dosage: 1 TABLET 2 DAILY WITH AM AND PM MEALS
     Route: 048

REACTIONS (2)
  - DYSPHAGIA [None]
  - LOCAL SWELLING [None]
